FAERS Safety Report 9809003 (Version 1)
Quarter: 2014Q1

REPORT INFORMATION
  Report Type: Spontaneous
  Country: US (occurrence: US)
  Receive Date: 20140110
  Receipt Date: 20140110
  Transmission Date: 20141002
  Serious: Yes (Hospitalization)
  Sender: FDA-Public Use
  Company Number: US-GLAXOSMITHKLINE-A1056010A

PATIENT
  Age: 58 Year
  Sex: Female

DRUGS (4)
  1. ADVAIR HFA [Suspect]
     Indication: ASTHMA
     Dosage: 1PUFF TWICE PER DAY
     Route: 055
     Dates: start: 20121210
  2. CELEXA [Concomitant]
  3. XANAX [Concomitant]
  4. TRAMADOL [Concomitant]

REACTIONS (1)
  - Mental disorder [Unknown]
